FAERS Safety Report 9116167 (Version 1)
Quarter: 2013Q1

REPORT INFORMATION
  Report Type: Spontaneous
  Country: NL (occurrence: NL)
  Receive Date: 20130225
  Receipt Date: 20130225
  Transmission Date: 20140127
  Serious: Yes (Death)
  Sender: FDA-Public Use
  Company Number: NL-ACTELION-A-CH2013-79693

PATIENT
  Age: 68 Year
  Sex: Male

DRUGS (4)
  1. TRACLEER [Suspect]
     Indication: SKIN ULCER
     Dosage: 125 MG, BID
     Route: 048
     Dates: start: 20090615
  2. TRACLEER [Suspect]
     Indication: PULMONARY ARTERIAL HYPERTENSION
     Dosage: 62.5 MG, BID
     Route: 048
     Dates: start: 20080212, end: 200803
  3. TRACLEER [Suspect]
     Dosage: 125 MG, BID
     Route: 048
     Dates: start: 200802, end: 20090406
  4. TRACLEER [Suspect]
     Dosage: 62.5 MG, BID
     Route: 048
     Dates: start: 20090407, end: 20090614

REACTIONS (1)
  - Death [Fatal]
